FAERS Safety Report 13458420 (Version 2)
Quarter: 2017Q2

REPORT INFORMATION
  Report Type: Spontaneous
  Country: US (occurrence: US)
  Receive Date: 20170419
  Receipt Date: 20170523
  Transmission Date: 20170830
  Serious: Yes (Other)
  Sender: FDA-Public Use
  Company Number: US-AKORN PHARMACEUTICALS-2017AKN00455

PATIENT
  Sex: Male
  Weight: 81.63 kg

DRUGS (1)
  1. MYORISAN [Suspect]
     Active Substance: ISOTRETINOIN
     Indication: ACNE CYSTIC
     Dosage: 40 MG, 1X/DAY
     Dates: start: 20170124, end: 20170406

REACTIONS (2)
  - Depression [Unknown]
  - Mood altered [Unknown]

NARRATIVE: CASE EVENT DATE: 2017
